FAERS Safety Report 5279306-2 (Version None)
Quarter: 2007Q1

REPORT INFORMATION
  Report Type: 
  Country: None (occurrence: None)
  Receive Date: 20070328
  Receipt Date: 20060524
  Transmission Date: 20070707
  Serious: No
  Sender: FDA-Public Use
  Company Number: US-AMGEN-US156665

PATIENT
  Sex: Male
  Weight: 90.8 kg

DRUGS (12)
  1. NEULASTA [Suspect]
     Indication: DRUG USE FOR UNKNOWN INDICATION
     Route: 058
     Dates: start: 20050311, end: 20050311
  2. LIPITOR [Concomitant]
  3. TOPROL-XL [Concomitant]
  4. OXYCONTIN [Concomitant]
  5. KLONOPIN [Concomitant]
  6. PLAVIX [Concomitant]
  7. VASOTEC [Concomitant]
  8. DESERIL [Concomitant]
  9. NITROSTAT [Concomitant]
  10. PROZAC [Concomitant]
  11. PERI-COLACE [Concomitant]
  12. FLORINEF [Concomitant]

REACTIONS (1)
  - DRUG INEFFECTIVE [None]
